FAERS Safety Report 19495902 (Version 1)
Quarter: 2021Q3

REPORT INFORMATION
  Report Type: Spontaneous
  Country: US (occurrence: US)
  Receive Date: 20210701
  Receipt Date: 20210701
  Transmission Date: 20211014
  Serious: No
  Sender: FDA-Public Use
  Company Number: None

PATIENT
  Age: 49 Year
  Sex: Female
  Weight: 63 kg

DRUGS (1)
  1. APIXABAN (APIXABAN 5MG TAB) [Suspect]
     Active Substance: APIXABAN
     Indication: PULMONARY EMBOLISM
     Dates: start: 20210524, end: 20210525

REACTIONS (5)
  - Mental status changes [None]
  - Blindness [None]
  - Vision blurred [None]
  - Haemorrhage intracranial [None]
  - Dysarthria [None]

NARRATIVE: CASE EVENT DATE: 20210526
